FAERS Safety Report 23276283 (Version 1)
Quarter: 2023Q4

REPORT INFORMATION
  Report Type: Spontaneous
  Country: SA (occurrence: SA)
  Receive Date: 20231208
  Receipt Date: 20231208
  Transmission Date: 20240110
  Serious: Yes (Other)
  Sender: FDA-Public Use
  Company Number: SA-BEH-2023165859

PATIENT
  Sex: Female

DRUGS (1)
  1. HUMAN IMMUNOGLOBULIN G [Suspect]
     Active Substance: HUMAN IMMUNOGLOBULIN G
     Indication: Product used for unknown indication
     Route: 064

REACTIONS (8)
  - Haemoglobin abnormal [Unknown]
  - Foetal exposure during pregnancy [Unknown]
  - Blood bilirubin abnormal [Unknown]
  - Foetal exposure during pregnancy [Unknown]
  - Bilirubin conjugated abnormal [Unknown]
  - Foetal exposure during pregnancy [Unknown]
  - Premature baby [Unknown]
  - Foetal exposure during pregnancy [Unknown]
